FAERS Safety Report 6013591-4 (Version None)
Quarter: 2008Q4

REPORT INFORMATION
  Report Type: 
  Country: None (occurrence: None)
  Receive Date: 20081219
  Receipt Date: 20081210
  Transmission Date: 20090506
  Serious: No
  Sender: FDA-Public Use
  Company Number: US-JNJFOC-20081203246

PATIENT
  Age: 43 Year
  Sex: Male
  Weight: 113.4 kg

DRUGS (4)
  1. INVEGA [Suspect]
     Indication: SCHIZOPHRENIA
     Route: 048
  2. WARFARIN SODIUM [Concomitant]
  3. METOPROLOL [Concomitant]
  4. LIPITOR [Concomitant]

REACTIONS (2)
  - DYSPNOEA [None]
  - PALPITATIONS [None]
